FAERS Safety Report 24466471 (Version 1)
Quarter: 2024Q4

REPORT INFORMATION
  Report Type: Report from Study
  Country: US (occurrence: US)
  Receive Date: 20241018
  Receipt Date: 20241018
  Transmission Date: 20250114
  Serious: No
  Sender: ROCHE
  Company Number: US-ROCHE-3544484

PATIENT

DRUGS (8)
  1. XOLAIR [Suspect]
     Active Substance: OMALIZUMAB
     Indication: Rheumatoid arthritis
     Route: 065
  2. XOLAIR [Suspect]
     Active Substance: OMALIZUMAB
     Indication: Cystitis interstitial
  3. XOLAIR [Suspect]
     Active Substance: OMALIZUMAB
     Indication: Asthma
  4. LORATADINE [Concomitant]
     Active Substance: LORATADINE
  5. FEXOFENADINE [Concomitant]
     Active Substance: FEXOFENADINE HYDROCHLORIDE
  6. RINVOQ [Concomitant]
     Active Substance: UPADACITINIB
  7. QUERCETIN [Concomitant]
     Active Substance: QUERCETIN
  8. FAMOTIDINE [Concomitant]
     Active Substance: FAMOTIDINE

REACTIONS (4)
  - Pain [Unknown]
  - Cystitis interstitial [Unknown]
  - Injection site pain [Unknown]
  - Needle issue [Unknown]
